FAERS Safety Report 6640294-5 (Version None)
Quarter: 2010Q1

REPORT INFORMATION
  Report Type: 
  Country: None (occurrence: None)
  Receive Date: 20100302
  Receipt Date: 20100113
  Transmission Date: 20100710
  Serious: No
  Sender: FDA-Public Use
  Company Number: MC201000019

PATIENT
  Sex: 0

DRUGS (2)
  1. CLEVIPREX [Suspect]
     Indication: BLOOD PRESSURE INCREASED
     Dosage: 1 MG, HR, INTRAVENOUS
     Route: 042
  2. DILAUDID [Concomitant]

REACTIONS (2)
  - DRUG ADMINISTRATION ERROR [None]
  - HYPOTENSION [None]
